FAERS Safety Report 12608681 (Version 2)
Quarter: 2017Q1

REPORT INFORMATION
  Report Type: Report from Study
  Country: US (occurrence: US)
  Receive Date: 20160729
  Receipt Date: 20170202
  Transmission Date: 20170428
  Serious: Yes (Death, Hospitalization)
  Sender: FDA-Public Use
  Company Number: US-ACTELION-A-NJ2016-139718

PATIENT
  Age: 78 Year
  Sex: Female
  Weight: 46.71 kg

DRUGS (11)
  1. PAROXETINE. [Concomitant]
     Active Substance: PAROXETINE
  2. AMBIEN [Concomitant]
     Active Substance: ZOLPIDEM TARTRATE
  3. NORVASC [Concomitant]
     Active Substance: AMLODIPINE BESYLATE
  4. PRADAXA [Concomitant]
     Active Substance: DABIGATRAN ETEXILATE MESYLATE
  5. TOPROL XL [Concomitant]
     Active Substance: METOPROLOL SUCCINATE
  6. ROSUVASTATIN. [Concomitant]
     Active Substance: ROSUVASTATIN
  7. BUSPAR [Concomitant]
     Active Substance: BUSPIRONE HYDROCHLORIDE
  8. OPSUMIT [Suspect]
     Active Substance: MACITENTAN
     Indication: PULMONARY ARTERIAL HYPERTENSION
     Dosage: 10 MG, QD
     Route: 048
     Dates: start: 20160129
  9. SYMBICORT [Concomitant]
     Active Substance: BUDESONIDE\FORMOTEROL FUMARATE DIHYDRATE
  10. SPIRIVA [Concomitant]
     Active Substance: TIOTROPIUM BROMIDE MONOHYDRATE
  11. LASIX [Concomitant]
     Active Substance: FUROSEMIDE

REACTIONS (19)
  - Asthenia [Fatal]
  - Lung infiltration [Unknown]
  - Hyperkalaemia [Unknown]
  - Peripheral swelling [Unknown]
  - Pulmonary arterial hypertension [Fatal]
  - Atrial fibrillation [Fatal]
  - Pleural effusion [Unknown]
  - Dyspnoea [Fatal]
  - Productive cough [Unknown]
  - Bradycardia [Unknown]
  - Renal failure [Unknown]
  - Oedema peripheral [Unknown]
  - Cellulitis [Unknown]
  - Chest pain [Fatal]
  - Palpitations [Fatal]
  - Anxiety [Unknown]
  - Pneumonia [Unknown]
  - Tachycardia [Fatal]
  - Pericardial effusion [Unknown]

NARRATIVE: CASE EVENT DATE: 20160828
